FAERS Safety Report 21399472 (Version 1)
Quarter: 2022Q4

REPORT INFORMATION
  Report Type: Spontaneous
  Country: US (occurrence: US)
  Receive Date: 20221001
  Receipt Date: 20221001
  Transmission Date: 20230113
  Serious: Yes (Other)
  Sender: FDA-Public Use
  Company Number: US-UNITED THERAPEUTICS-UNT-2022-022563

PATIENT
  Age: 61 Year
  Sex: Female
  Weight: 62.585 kg

DRUGS (3)
  1. REMODULIN [Suspect]
     Active Substance: TREPROSTINIL
     Indication: Pulmonary arterial hypertension
     Dosage: UNK, CONTINUING
     Route: 041
     Dates: start: 20200805
  2. REMODULIN [Suspect]
     Active Substance: TREPROSTINIL
     Dosage: 0.114 ?G/KG, CONTINUING
     Route: 041
  3. OPSUMIT [Concomitant]
     Active Substance: MACITENTAN
     Indication: Product used for unknown indication
     Dosage: UNK
     Route: 065

REACTIONS (5)
  - Haemorrhage [Unknown]
  - Cyst rupture [Unknown]
  - Peripheral swelling [Unknown]
  - Pain in extremity [Unknown]
  - Haematoma [Unknown]

NARRATIVE: CASE EVENT DATE: 20220901
